FAERS Safety Report 17414567 (Version 2)
Quarter: 2021Q2

REPORT INFORMATION
  Report Type: Spontaneous
  Country: US (occurrence: US)
  Receive Date: 20200213
  Receipt Date: 20210617
  Transmission Date: 20210716
  Serious: Yes (Other)
  Sender: FDA-Public Use
  Company Number: US-TEVA-2020-US-1183402

PATIENT
  Age: 73 Year
  Sex: Male
  Weight: 127.12 kg

DRUGS (16)
  1. CEFALEXIN 500MG [Concomitant]
  2. ESOMEPRAZOLE 40MG [Concomitant]
     Active Substance: ESOMEPRAZOLE
  3. FERROUS SULFATE 325MG [Concomitant]
     Active Substance: FERROUS SULFATE
     Dosage: EXTENDED RELEASE
  4. LOSARTAN 50MG [Concomitant]
     Active Substance: LOSARTAN
  5. OXYBUTYNIN XL [Concomitant]
     Active Substance: OXYBUTYNIN CHLORIDE
     Dosage: 10 MILLIGRAM DAILY;
  6. VALSARTAN HCT TEVA [Suspect]
     Active Substance: HYDROCHLOROTHIAZIDE\VALSARTAN
     Indication: HYPERTENSION
     Dosage: 320/12.5MG
     Route: 065
     Dates: start: 20130520, end: 20141212
  7. CARVEDILOL 6.25MG [Concomitant]
     Active Substance: CARVEDILOL
  8. VALSARTAN SOLCO [Suspect]
     Active Substance: VALSARTAN
     Route: 065
     Dates: start: 20160901, end: 20170221
  9. MUPIROCIN 2% [Concomitant]
     Active Substance: MUPIROCIN
  10. ATORVASTATIN 20MG [Concomitant]
     Active Substance: ATORVASTATIN
  11. BROMOCRIPTINE .8MG [Concomitant]
  12. GLIMEPIRIDE 4MG [Concomitant]
     Active Substance: GLIMEPIRIDE
  13. TYLENOL EXTRA STRENGTH [Concomitant]
     Active Substance: ACETAMINOPHEN
     Dosage: EXPIRED
  14. VALSARTAN HCT LUPIN [Suspect]
     Active Substance: HYDROCHLOROTHIAZIDE\VALSARTAN
     Indication: HYPERTENSION
     Dosage: 320/12.5MG
     Route: 065
     Dates: start: 20141205, end: 20160924
  15. VALSARTAN SOLCO [Suspect]
     Active Substance: VALSARTAN
     Indication: HYPERTENSION
     Route: 065
     Dates: start: 20170405, end: 20170704
  16. DAPAGLIFLOZIN 5 MG [Concomitant]
     Active Substance: DAPAGLIFLOZIN

REACTIONS (1)
  - Colon cancer stage III [Recovered/Resolved]
